FAERS Safety Report 5151962-9 (Version None)
Quarter: 2006Q4

REPORT INFORMATION
  Report Type: 
  Country: None (occurrence: None)
  Receive Date: 20061109
  Receipt Date: 20061031
  Transmission Date: 20070319
  Serious: Yes (Life-Threatening, Hospitalization)
  Sender: FDA-Public Use
  Company Number: 2006133793

PATIENT
  Age: 67 Year
  Sex: Male
  Weight: 70 kg

DRUGS (3)
  1. ACCUPRIL [Suspect]
     Indication: CARDIAC FAILURE CONGESTIVE
     Dosage: 5 MG (5 MG, QD), ORAL
     Route: 048
     Dates: start: 20060801, end: 20061001
  2. SELEKTINE                     (PRAVASTATIN SODIUM) [Concomitant]
  3. BUMETANIDE [Concomitant]

REACTIONS (8)
  - ABDOMINAL PAIN [None]
  - ANGIONEUROTIC OEDEMA [None]
  - BRONCHITIS [None]
  - FATIGUE [None]
  - HYPERHIDROSIS [None]
  - LIVER DISORDER [None]
  - VOMITING [None]
  - WEIGHT INCREASED [None]
